FAERS Safety Report 16597380 (Version 1)
Quarter: 2019Q3

REPORT INFORMATION
  Report Type: Spontaneous
  Country: US (occurrence: US)
  Receive Date: 20190719
  Receipt Date: 20190719
  Transmission Date: 20191004
  Serious: No
  Sender: FDA-Public Use
  Company Number: US-PFIZER INC-2019303361

PATIENT
  Sex: Male

DRUGS (1)
  1. KERYDIN [Suspect]
     Active Substance: TAVABOROLE
     Dosage: UNK

REACTIONS (1)
  - Application site pruritus [Unknown]
